FAERS Safety Report 5500116-2 (Version None)
Quarter: 2007Q4

REPORT INFORMATION
  Report Type: 
  Country: None (occurrence: None)
  Receive Date: 20071024
  Receipt Date: 20071009
  Transmission Date: 20080405
  Serious: Yes (Life-Threatening)
  Sender: FDA-Public Use
  Company Number: GXKR2007NL08735

PATIENT
  Age: 62 Year
  Sex: Male

DRUGS (1)
  1. SOTALOL HCL [Suspect]

REACTIONS (5)
  - CARDIAC ARREST [None]
  - DRUG TOXICITY [None]
  - SINUS BRADYCARDIA [None]
  - SUICIDE ATTEMPT [None]
  - TORSADE DE POINTES [None]
